FAERS Safety Report 7323947-5 (Version None)
Quarter: 2011Q1

REPORT INFORMATION
  Report Type: 
  Country: None (occurrence: None)
  Receive Date: 20110301
  Receipt Date: 20110217
  Transmission Date: 20110831
  Serious: Yes (Hospitalization)
  Sender: FDA-Public Use
  Company Number: B0700357A

PATIENT
  Sex: Female

DRUGS (14)
  1. INDOMETACIN [Concomitant]
     Route: 061
     Dates: start: 20090311, end: 20110131
  2. BENET [Concomitant]
     Indication: OSTEOPOROSIS
     Route: 048
     Dates: start: 20090715, end: 20110131
  3. ASPARA-CA [Concomitant]
     Indication: OSTEOPOROSIS
     Dosage: 400MG PER DAY
     Route: 048
     Dates: start: 20080305, end: 20110131
  4. OMEPRAZOLE [Concomitant]
     Indication: GASTRITIS
     Dosage: 10MG PER DAY
     Route: 048
     Dates: start: 20080305, end: 20110131
  5. BROTIZOLAM [Concomitant]
     Indication: INSOMNIA
     Dosage: .25MG AS REQUIRED
     Route: 048
     Dates: start: 20080723, end: 20110131
  6. OMACOR [Suspect]
     Dosage: 2000MG TWICE PER DAY
     Route: 048
     Dates: start: 20100414, end: 20110131
  7. HIRUDOID [Concomitant]
     Indication: DRY SKIN
     Route: 061
     Dates: start: 20090107, end: 20110131
  8. PRAVASTATIN [Concomitant]
     Dosage: 10MG PER DAY
     Dates: start: 20080305, end: 20110131
  9. ALFACALCIDOL [Concomitant]
     Indication: OSTEOPOROSIS
     Dosage: .5MCG PER DAY
     Route: 048
     Dates: start: 20080305, end: 20110131
  10. RESLIN [Concomitant]
     Indication: DEPRESSION
     Dosage: 25MG AS REQUIRED
     Route: 048
     Dates: start: 20090930, end: 20110131
  11. BUFFERIN [Concomitant]
     Indication: ARTERIOSCLEROSIS
     Dosage: 81MG PER DAY
     Route: 048
     Dates: start: 20080305, end: 20110131
  12. ETIZOLAM [Concomitant]
     Indication: DEPRESSION
     Dosage: .5MG AS REQUIRED
     Route: 048
     Dates: start: 20080723, end: 20110131
  13. DIOVAN [Concomitant]
     Indication: HYPERTENSION
     Dosage: 40MG PER DAY
     Route: 048
     Dates: start: 20080305, end: 20110131
  14. CHINESE HERBAL MEDICINE [Concomitant]
     Dates: start: 20080305, end: 20110131

REACTIONS (1)
  - SUBARACHNOID HAEMORRHAGE [None]
